FAERS Safety Report 5398598-2 (Version None)
Quarter: 2007Q3

REPORT INFORMATION
  Report Type: 
  Country: None (occurrence: None)
  Receive Date: 20070725
  Receipt Date: 20070720
  Transmission Date: 20080115
  Serious: Yes (Hospitalization)
  Sender: FDA-Public Use
  Company Number: S07-USA-01719-01

PATIENT
  Age: 59 Year
  Sex: Female

DRUGS (9)
  1. LEXAPRO [Suspect]
     Indication: DEPRESSION
     Dosage: 20 MG QD; PO
     Route: 048
     Dates: start: 20040501
  2. LEXAPRO [Suspect]
     Indication: PANIC DISORDER
     Dosage: 20 MG QD; PO
     Route: 048
     Dates: start: 20040501
  3. LEXAPRO [Suspect]
     Indication: DEPRESSION
     Dosage: 20 MG, QD; PO
     Route: 048
     Dates: start: 20040301, end: 20040501
  4. LEXAPRO [Suspect]
     Indication: PANIC DISORDER
     Dosage: 20 MG, QD; PO
     Route: 048
     Dates: start: 20040301, end: 20040501
  5. PROTONIX [Concomitant]
  6. SYNTHROID [Concomitant]
  7. BENICAR [Concomitant]
  8. MULTIVITAMIN (NOS) [Concomitant]
  9. CALCIUM + VITAMIN D [Concomitant]

REACTIONS (6)
  - ASTHENIA [None]
  - DIZZINESS [None]
  - HYPERHIDROSIS [None]
  - MUSCULOSKELETAL PAIN [None]
  - PAIN [None]
  - SPLENIC HAEMORRHAGE [None]
